FAERS Safety Report 19803635 (Version 1)
Quarter: 2021Q3

REPORT INFORMATION
  Report Type: Report from Study
  Country: TR (occurrence: TR)
  Receive Date: 20210908
  Receipt Date: 20210908
  Transmission Date: 20211014
  Serious: Yes (Death, Other)
  Sender: FDA-Public Use
  Company Number: TR-PFIZER INC-202101140635

PATIENT

DRUGS (3)
  1. EPIRUBICIN HCL [Suspect]
     Active Substance: EPIRUBICIN HYDROCHLORIDE
     Indication: OSTEOSARCOMA
     Dosage: 90 MG/M2, CYCLIC (1ST DAY)
  2. CISPLATIN. [Suspect]
     Active Substance: CISPLATIN
     Indication: OSTEOSARCOMA
     Dosage: 100 MG/M2, CYCLIC (4TH DAY)
  3. IFOSFAMIDE/MESNA [Suspect]
     Active Substance: IFOSFAMIDE\MESNA
     Indication: OSTEOSARCOMA
     Dosage: 1.8 G/M2 CYCLIC (1ST DAY, 2ND DAY, 3RD DAY)

REACTIONS (5)
  - Cardiotoxicity [Fatal]
  - Anaemia [Unknown]
  - Neutropenia [Unknown]
  - Thrombocytopenia [Unknown]
  - Febrile neutropenia [Unknown]
